FAERS Safety Report 5374656-3 (Version None)
Quarter: 2007Q2

REPORT INFORMATION
  Report Type: 
  Country: None (occurrence: None)
  Receive Date: 20070629
  Receipt Date: 20070626
  Transmission Date: 20071010
  Serious: Yes (Life-Threatening, Hospitalization)
  Sender: FDA-Public Use
  Company Number: NL-AVENTIS-200715687GDDC

PATIENT
  Age: 60 Year
  Sex: Female
  Weight: 100 kg

DRUGS (18)
  1. LANTUS [Suspect]
     Indication: DIABETES MELLITUS INSULIN-DEPENDENT
     Route: 058
     Dates: start: 20060323
  2. NOVORAPID [Suspect]
     Indication: DIABETES MELLITUS INSULIN-DEPENDENT
     Route: 058
     Dates: start: 20060323
  3. HUMIRA [Suspect]
     Indication: RHEUMATOID ARTHRITIS
     Dates: start: 20061123
  4. FLUTICASON PROPIONATE [Concomitant]
     Dosage: DOSE: 1 DF
     Dates: start: 20070129
  5. DORZOLAMIDE HYDROCHLORIDE-TIMOLOL MALEATE [Concomitant]
     Dosage: DOSE QUANTITY: 1
     Dates: start: 20061027
  6. CARMELLOSE [Concomitant]
     Dosage: DOSE QUANTITY: 1
     Dates: start: 20060119
  7. POLYVINYL ALCOHOL [Concomitant]
     Dates: start: 20060119
  8. LEDERTREXATE                       /00113801/ [Concomitant]
     Dates: start: 20051014
  9. VOLTAREN [Concomitant]
     Dates: start: 20050530
  10. METOCLOPRAMIDE [Concomitant]
  11. FOLIUMZUUR [Concomitant]
     Dates: start: 20051014
  12. ALENDRONINEZUUR KR [Concomitant]
     Dates: start: 20050914
  13. ATENOLOL AND CHLORTHALIDONE [Concomitant]
     Dosage: DOSE: 1 DF
  14. LEVOTHYROXINE SODIUM [Concomitant]
     Dates: start: 19870101
  15. LEVOTHYROXINE SODIUM [Concomitant]
     Dates: start: 20050624
  16. LOSEC                              /00661201/ [Concomitant]
  17. METOCLOPRAMIDE [Concomitant]
  18. CARBASALATE CALCIUM [Concomitant]

REACTIONS (2)
  - DRUG INTERACTION [None]
  - HYPOGLYCAEMIA [None]
